FAERS Safety Report 19705731 (Version 1)
Quarter: 2021Q3

REPORT INFORMATION
  Report Type: Spontaneous
  Country: US (occurrence: US)
  Receive Date: 20210817
  Receipt Date: 20210817
  Transmission Date: 20211014
  Serious: Yes (Hospitalization, Other)
  Sender: FDA-Public Use
  Company Number: US-AUROBINDO-AUR-APL-2009-01532

PATIENT
  Age: 75 Year
  Sex: Male
  Weight: 65.8 kg

DRUGS (3)
  1. TRAZODONE [Concomitant]
     Active Substance: TRAZODONE HYDROCHLORIDE
     Indication: SLEEP DISORDER
     Dosage: 25 MILLIGRAM, ONCE A DAY AT NIGHT TIME
     Route: 048
  2. GABAPENTIN. [Suspect]
     Active Substance: GABAPENTIN
     Indication: ANXIETY
     Dosage: 300 MILLIGRAM, 3 TIMES A DAY
     Route: 048
  3. LIDOCAINE. [Concomitant]
     Active Substance: LIDOCAINE
     Indication: MOUTH ULCERATION
     Dosage: 5 MILLILITER, FOUR TIMES/DAY
     Route: 048

REACTIONS (4)
  - Choreoathetosis [Recovered/Resolved]
  - Saccadic eye movement [Recovered/Resolved]
  - Chorea [Recovered/Resolved]
  - Dyskinesia [Recovered/Resolved]
